FAERS Safety Report 21559989 (Version 1)
Quarter: 2022Q4

REPORT INFORMATION
  Report Type: Spontaneous
  Country: US (occurrence: US)
  Receive Date: 20221107
  Receipt Date: 20221107
  Transmission Date: 20230112
  Serious: No
  Sender: FDA-Public Use
  Company Number: US-ELI_LILLY_AND_COMPANY-US202210015123

PATIENT
  Sex: Female

DRUGS (5)
  1. MOUNJARO [Suspect]
     Active Substance: TIRZEPATIDE
     Indication: Product used for unknown indication
     Dosage: 7.5 MG, UNKNOWN
     Route: 065
  2. MOUNJARO [Suspect]
     Active Substance: TIRZEPATIDE
     Dosage: 10 MG, UNKNOWN
     Route: 065
  3. IMODIUM [Concomitant]
     Active Substance: LOPERAMIDE HYDROCHLORIDE
     Indication: Abdominal discomfort
     Route: 065
  4. METHOTREXATE [Concomitant]
     Active Substance: METHOTREXATE
     Indication: Sarcoidosis
     Dosage: 15 MG, UNKNOWN
     Route: 065
  5. JARDIANCE [Concomitant]
     Active Substance: EMPAGLIFLOZIN
     Indication: Glucose tolerance impaired
     Dosage: 10 MG, UNKNOWN
     Route: 065

REACTIONS (5)
  - Weight decreased [Unknown]
  - Dyspepsia [Recovered/Resolved]
  - Nausea [Recovered/Resolved]
  - Abdominal discomfort [Recovered/Resolved]
  - Diarrhoea [Recovered/Resolved]
